FAERS Safety Report 19116084 (Version 1)
Quarter: 2021Q2

REPORT INFORMATION
  Report Type: Other
  Country: KR (occurrence: KR)
  Receive Date: 20210409
  Receipt Date: 20210409
  Transmission Date: 20210717
  Serious: Yes (Hospitalization)
  Sender: FDA-Public Use
  Company Number: KR-NAVINTA LLC-000134

PATIENT
  Age: 33 Year
  Sex: Female

DRUGS (1)
  1. INDOMETHACIN. [Suspect]
     Active Substance: INDOMETHACIN
     Indication: POLYHYDRAMNIOS

REACTIONS (5)
  - Abdominal distension [Unknown]
  - Exposure during pregnancy [Unknown]
  - Condition aggravated [Unknown]
  - Drug ineffective [Unknown]
  - Dyspnoea [Unknown]
